FAERS Safety Report 4964763-9 (Version None)
Quarter: 2006Q2

REPORT INFORMATION
  Report Type: 
  Country: None (occurrence: None)
  Receive Date: 20060406
  Receipt Date: 20060327
  Transmission Date: 20061013
  Serious: Yes (Death)
  Sender: FDA-Public Use
  Company Number: US-NOVOPROD-251975

PATIENT
  Age: 78 Year
  Sex: Male
  Weight: 73 kg

DRUGS (14)
  1. NOVOSEVEN [Suspect]
     Indication: ILL-DEFINED DISORDER
     Dosage: 2.4 MG, SINGLE
     Route: 042
  2. NOVOSEVEN [Suspect]
     Dosage: 4.8 MG, SINGLE
     Route: 042
  3. NOVOSEVEN [Suspect]
     Dosage: 2.4 MG, SINGLE
     Route: 042
  4. NOVOSEVEN [Suspect]
     Dosage: 2.4 MG, SINGLE
     Route: 042
  5. NOVOSEVEN [Suspect]
     Dosage: 4 MG, SINGLE
     Route: 042
  6. NOVOSEVEN [Suspect]
     Dosage: 4 MG, SINGLE
     Route: 042
  7. ACETYLSALICYLIC ACID SRT [Concomitant]
     Indication: ILL-DEFINED DISORDER
  8. APROTININ [Concomitant]
     Indication: ILL-DEFINED DISORDER
     Dosage: FULL DOSE
  9. HEPARIN [Concomitant]
     Indication: ILL-DEFINED DISORDER
     Dosage: 25000 U, UNK
  10. PROTAMINE SULFATE [Concomitant]
     Indication: ILL-DEFINED DISORDER
     Dosage: 300 UNK, UNK
  11. BLOOD CELLS, PACKED HUMAN [Concomitant]
     Indication: ILL-DEFINED DISORDER
     Dosage: 15 U, UNK
  12. FRESH FROZEN PLASMA [Concomitant]
     Indication: ILL-DEFINED DISORDER
     Dosage: 12 U, UNK
  13. PLATELETS [Concomitant]
     Indication: ILL-DEFINED DISORDER
     Dosage: 20 U, UNK
  14. KRIOPRECIPITAT [Concomitant]
     Indication: ILL-DEFINED DISORDER
     Dosage: 20 U, UNK

REACTIONS (1)
  - DEATH [None]
